FAERS Safety Report 7674572-8 (Version None)
Quarter: 2011Q3

REPORT INFORMATION
  Report Type: 
  Country: None (occurrence: None)
  Receive Date: 20110810
  Receipt Date: 20110802
  Transmission Date: 20111222
  Serious: Yes (Other)
  Sender: FDA-Public Use
  Company Number: PHFR2011GB04556

PATIENT
  Sex: Female

DRUGS (1)
  1. CLOZAPINE [Suspect]
     Indication: SCHIZOPHRENIA
     Route: 048
     Dates: start: 20110727, end: 20110802

REACTIONS (5)
  - BALANCE DISORDER [None]
  - SEDATION [None]
  - SALIVARY HYPERSECRETION [None]
  - COORDINATION ABNORMAL [None]
  - HYPOTENSION [None]
